FAERS Safety Report 8106624-2 (Version None)
Quarter: 2012Q1

REPORT INFORMATION
  Report Type: 
  Country: None (occurrence: None)
  Receive Date: 20120202
  Receipt Date: 20120123
  Transmission Date: 20120608
  Serious: Yes (Other)
  Sender: FDA-Public Use
  Company Number: US-ELI_LILLY_AND_COMPANY-US201011006486

PATIENT
  Age: 69 Year
  Sex: Female

DRUGS (5)
  1. ZYPREXA [Suspect]
     Dosage: UNK
     Route: 065
  2. SEROTONIN [Concomitant]
  3. ZYPREXA ZYDIS [Suspect]
     Dosage: 10 MG, EACH EVENING
     Route: 048
     Dates: start: 20010815, end: 20010822
  4. ZYPREXA [Suspect]
     Dosage: 10 MG, DAILY (1/D)
     Dates: start: 20010822, end: 20101115
  5. DOPAMINE HCL [Concomitant]

REACTIONS (53)
  - WHITE BLOOD CELLS URINE POSITIVE [None]
  - COORDINATION ABNORMAL [None]
  - DISTURBANCE IN ATTENTION [None]
  - DIPLOPIA [None]
  - HEADACHE [None]
  - BACK PAIN [None]
  - WEIGHT INCREASED [None]
  - ARTHRALGIA [None]
  - MUSCLE RIGIDITY [None]
  - WRIST FRACTURE [None]
  - JOINT DISLOCATION [None]
  - NUCHAL RIGIDITY [None]
  - AGEUSIA [None]
  - DYSARTHRIA [None]
  - COLON NEOPLASM [None]
  - FEELING ABNORMAL [None]
  - CRYING [None]
  - CONSTIPATION [None]
  - INCREASED APPETITE [None]
  - EAR PAIN [None]
  - PNEUMONIA [None]
  - HYPERVENTILATION [None]
  - RHINORRHOEA [None]
  - CATARACT [None]
  - CHOKING [None]
  - CHEST PAIN [None]
  - OEDEMA PERIPHERAL [None]
  - DIZZINESS [None]
  - SUICIDAL IDEATION [None]
  - OCCULT BLOOD POSITIVE [None]
  - DYSPHONIA [None]
  - CONFUSIONAL STATE [None]
  - ROAD TRAFFIC ACCIDENT [None]
  - NASAL CONGESTION [None]
  - JOINT SWELLING [None]
  - ABDOMINAL PAIN [None]
  - TREMOR [None]
  - DRY MOUTH [None]
  - APHASIA [None]
  - DYSPHEMIA [None]
  - ABDOMINAL PAIN UPPER [None]
  - PERSONALITY CHANGE [None]
  - AMNESIA [None]
  - RENAL DISORDER [None]
  - CREPITATIONS [None]
  - OROPHARYNGEAL PAIN [None]
  - DIARRHOEA [None]
  - DYSKINESIA [None]
  - ORAL PAIN [None]
  - PSYCHIATRIC SYMPTOM [None]
  - EYE DISORDER [None]
  - INSOMNIA [None]
  - COUGH [None]
